FAERS Safety Report 8018914-2 (Version None)
Quarter: 2011Q4

REPORT INFORMATION
  Report Type: 
  Country: None (occurrence: None)
  Receive Date: 20111227
  Receipt Date: 20110411
  Transmission Date: 20120403
  Serious: Yes (Other)
  Sender: FDA-Public Use
  Company Number: AUR-APL-2011-01298

PATIENT
  Age: 69 Year
  Sex: Female

DRUGS (10)
  1. GLYBURIDE AND METFORMIN HYDROCHLORIDE [Suspect]
     Indication: PRODUCT USED FOR UNKNOWN INDICATION
     Dosage: (1 D),
  2. AMIODARONE HCL [Concomitant]
  3. OMEPRAZOLE [Concomitant]
  4. ATORVASTATIN CALCIUM [Concomitant]
  5. LISINOPRIL [Concomitant]
  6. FUROSEMIDE [Concomitant]
  7. VALSARTAN [Concomitant]
  8. AMLODIPINE BESYLATE [Concomitant]
  9. CLONIDINE [Concomitant]
  10. GABAPENTIN [Concomitant]

REACTIONS (19)
  - MALAISE [None]
  - RHONCHI [None]
  - BLOOD LACTIC ACID INCREASED [None]
  - HAEMODIALYSIS [None]
  - TOXICITY TO VARIOUS AGENTS [None]
  - ASTHENIA [None]
  - HYPERKALAEMIA [None]
  - BLOOD CHLORIDE DECREASED [None]
  - BLOOD CREATININE INCREASED [None]
  - BLOOD GLUCOSE DECREASED [None]
  - RESPIRATORY RATE INCREASED [None]
  - KUSSMAUL RESPIRATION [None]
  - ABDOMINAL TENDERNESS [None]
  - DRUG LEVEL INCREASED [None]
  - MUCOUS MEMBRANE DISORDER [None]
  - METABOLIC ACIDOSIS [None]
  - ANION GAP INCREASED [None]
  - BLOOD PRESSURE INCREASED [None]
  - RENAL FAILURE CHRONIC [None]
